FAERS Safety Report 12549948 (Version 2)
Quarter: 2016Q4

REPORT INFORMATION
  Report Type: Spontaneous
  Country: US (occurrence: US)
  Receive Date: 20160712
  Receipt Date: 20161129
  Transmission Date: 20170207
  Serious: Yes (Other)
  Sender: FDA-Public Use
  Company Number: US-MALLINCKRODT-T201602920

PATIENT
  Sex: Female

DRUGS (3)
  1. HYDROCODONE [Suspect]
     Active Substance: HYDROCODONE
     Indication: BREAKTHROUGH PAIN
     Dosage: UNKNOWN DOSE/FREQUENCY
     Route: 065
  2. FENTANYL TRANSDERMAL SYSTEM [Suspect]
     Active Substance: FENTANYL
     Indication: PAIN
     Dosage: 50 MCG/HR PATCH (DOSE/FREQUENCY NOT PROVIDED)
     Route: 062
  3. FENTANYL TRANSDERMAL SYSTEM [Suspect]
     Active Substance: FENTANYL
     Dosage: 75 MCG/HR PATCH (DOSE/FREQUENCY NOT PROVIDED)
     Route: 062

REACTIONS (8)
  - Pneumonia [Unknown]
  - Body mass index decreased [Unknown]
  - Drug withdrawal syndrome [Recovered/Resolved]
  - Accidental overdose [Recovered/Resolved]
  - Metabolic disorder [Unknown]
  - Feeling abnormal [Unknown]
  - Somnolence [Unknown]
  - Mood altered [Unknown]
